FAERS Safety Report 6712641-7 (Version None)
Quarter: 2010Q2

REPORT INFORMATION
  Report Type: 
  Country: None (occurrence: None)
  Receive Date: 20100506
  Receipt Date: 20100422
  Transmission Date: 20101027
  Serious: Yes (Other)
  Sender: FDA-Public Use
  Company Number: US-JNJFOC-20100500948

PATIENT
  Sex: Female

DRUGS (3)
  1. MICRONOR [Suspect]
     Indication: MENOPAUSAL SYMPTOMS
     Route: 065
  2. PREMARIN [Suspect]
     Indication: MENOPAUSAL SYMPTOMS
     Route: 065
  3. PREMPRO [Suspect]
     Indication: MENOPAUSAL SYMPTOMS
     Route: 065

REACTIONS (2)
  - BREAST CANCER [None]
  - OFF LABEL USE [None]
